FAERS Safety Report 15354966 (Version 1)
Quarter: 2018Q3

REPORT INFORMATION
  Report Type: Spontaneous
  Country: FR (occurrence: FR)
  Receive Date: 20180906
  Receipt Date: 20180906
  Transmission Date: 20181010
  Serious: Yes (Hospitalization)
  Sender: FDA-Public Use
  Company Number: FR-CONCORDIA PHARMACEUTICALS INC.-E2B_00016540

PATIENT
  Age: 34 Year
  Sex: Female
  Weight: 50 kg

DRUGS (14)
  1. LEDERFOLINE 5 MG, COMPRIM? [Concomitant]
     Route: 048
  2. PREDNISOLONE. [Suspect]
     Active Substance: PREDNISOLONE
     Route: 048
     Dates: start: 20180706, end: 20180706
  3. ZYMAD 80 000 UI, SOLUTION BUVABLE EN AMPOULE [Concomitant]
     Active Substance: CHOLECALCIFEROL
     Route: 048
  4. NORVIR 100 MG, CAPSULE MOLLE [Concomitant]
     Route: 048
  5. FLUCONAZOLE. [Concomitant]
     Active Substance: FLUCONAZOLE
     Route: 048
  6. PARACETAMOL [Concomitant]
     Active Substance: ACETAMINOPHEN
     Route: 048
  7. VALACICLOVIR [Concomitant]
     Active Substance: VALACYCLOVIR HYDROCHLORIDE
     Route: 048
  8. BACTRIM [Suspect]
     Active Substance: SULFAMETHOXAZOLE\TRIMETHOPRIM
     Indication: PNEUMOCYSTIS JIROVECII PNEUMONIA
     Dates: start: 20180704, end: 20180717
  9. ABILIFY 5 MG, COMPRIM? [Concomitant]
     Route: 048
     Dates: start: 20180711
  10. LYRICA 25 MG, G?LULE [Concomitant]
     Route: 048
  11. PRIMPERAN [Concomitant]
     Active Substance: METOCLOPRAMIDE HYDROCHLORIDE
     Route: 048
  12. TRUVADA [Concomitant]
     Active Substance: EMTRICITABINE\TENOFOVIR DISOPROXIL FUMARATE
     Route: 048
  13. PREZISTA 800 MG, COMPRIM? PELLICUL? [Concomitant]
     Route: 048
  14. CORTANCYL 20 MG, COMPRIM? [Suspect]
     Active Substance: PREDNISONE
     Route: 048
     Dates: start: 20180706, end: 20180709

REACTIONS (5)
  - Hyponatraemia [Recovered/Resolved]
  - Neutropenia [Recovering/Resolving]
  - Hallucination [Recovered/Resolved]
  - Hepatocellular injury [Not Recovered/Not Resolved]
  - Acute kidney injury [Recovered/Resolved]

NARRATIVE: CASE EVENT DATE: 20180705
